FAERS Safety Report 8977968 (Version 4)
Quarter: 2013Q2

REPORT INFORMATION
  Report Type: Report from Study
  Country: IL (occurrence: IL)
  Receive Date: 20121219
  Receipt Date: 20130418
  Transmission Date: 20140414
  Serious: Yes (Congenital Anomaly)
  Sender: FDA-Public Use
  Company Number: IL-GENZYME-CAMP-1002612

PATIENT
  Sex: 0

DRUGS (4)
  1. ALEMTUZUMAB [Suspect]
     Indication: MULTIPLE SCLEROSIS
     Dosage: 12 MG, QD
     Route: 064
     Dates: start: 20100502, end: 20100504
  2. ALEMTUZUMAB [Suspect]
     Dosage: 12 MG, QD
     Route: 064
     Dates: start: 20090517, end: 20090521
  3. PROPYLTHIOURACIL [Concomitant]
     Indication: THYROID DISORDER
     Dosage: 50 MG, QD
     Route: 064
     Dates: start: 20110817, end: 20120528
  4. PROPYLTHIOURACIL [Concomitant]
     Indication: THYROID DISORDER
     Dosage: 50 MG, BID
     Route: 064
     Dates: start: 20120528

REACTIONS (2)
  - Foetal cystic hygroma [Recovered/Resolved]
  - Hypoplastic left heart syndrome [Recovered/Resolved]
